FAERS Safety Report 6301290-0 (Version None)
Quarter: 2009Q3

REPORT INFORMATION
  Report Type: 
  Country: None (occurrence: None)
  Receive Date: 20090805
  Receipt Date: 20090805
  Transmission Date: 20100115
  Serious: Yes (Other)
  Sender: FDA-Public Use
  Company Number: None

PATIENT
  Age: 58 Year
  Sex: Female
  Weight: 79.3795 kg

DRUGS (1)
  1. SOLUMEDROL 1000 MG INFUSIONS [Suspect]
     Indication: MULTIPLE SCLEROSIS
     Dates: start: 20090521, end: 20090528

REACTIONS (12)
  - AGITATION [None]
  - ANXIETY [None]
  - BLOOD GLUCOSE INCREASED [None]
  - CONFUSIONAL STATE [None]
  - DELIRIUM [None]
  - HALLUCINATION [None]
  - IMPAIRED WORK ABILITY [None]
  - INSOMNIA [None]
  - MENTAL DISORDER [None]
  - PAROSMIA [None]
  - POISONING [None]
  - PSYCHOTIC DISORDER [None]
